FAERS Safety Report 10163570 (Version 1)
Quarter: 2014Q2

REPORT INFORMATION
  Report Type: Spontaneous
  Country: US (occurrence: US)
  Receive Date: 20140509
  Receipt Date: 20140509
  Transmission Date: 20141212
  Serious: Yes (Hospitalization, Disabling, Other)
  Sender: FDA-Public Use
  Company Number: US-009507513-1405USA004449

PATIENT
  Sex: Male
  Weight: 65.31 kg

DRUGS (5)
  1. JANUMET [Suspect]
     Indication: TYPE 2 DIABETES MELLITUS
     Dosage: 50 MG/1000 MG, BID
     Route: 048
     Dates: start: 20120208, end: 20130801
  2. HUMALOG [Concomitant]
     Indication: TYPE 2 DIABETES MELLITUS
  3. LANTUS [Concomitant]
     Indication: TYPE 2 DIABETES MELLITUS
  4. LEVEMIR [Concomitant]
     Indication: TYPE 2 DIABETES MELLITUS
     Dosage: UNK
     Dates: start: 20130106
  5. NOVOLOG [Concomitant]
     Indication: TYPE 2 DIABETES MELLITUS
     Dosage: UNK
     Dates: start: 20130106

REACTIONS (25)
  - Duodenal polyp [Unknown]
  - Gastrooesophageal reflux disease [Unknown]
  - Renal cyst [Unknown]
  - Cholelithiasis [Unknown]
  - Malabsorption [Unknown]
  - Hepatic lesion [Unknown]
  - Constipation [Unknown]
  - Nausea [Unknown]
  - Drug ineffective [Unknown]
  - Adenocarcinoma pancreas [Unknown]
  - Radiotherapy [Unknown]
  - Pancreaticoduodenectomy [Unknown]
  - Jejunostomy [Unknown]
  - Explorative laparotomy [Unknown]
  - Biopsy pancreas [Unknown]
  - Pancytopenia [Unknown]
  - Intestinal adhesion lysis [Unknown]
  - Gastrointestinal anastomotic complication [Recovered/Resolved]
  - Osteomyelitis [Recovered/Resolved]
  - Incisional drainage [Unknown]
  - Pancreatitis [Unknown]
  - Hyperglycaemia [Unknown]
  - Diabetic neuropathy [Unknown]
  - Anaemia [Unknown]
  - Depression [Unknown]
